FAERS Safety Report 20617695 (Version 1)
Quarter: 2022Q1

REPORT INFORMATION
  Report Type: Spontaneous
  Country: US (occurrence: US)
  Receive Date: 20220321
  Receipt Date: 20220321
  Transmission Date: 20220423
  Serious: No
  Sender: FDA-Public Use
  Company Number: US-TEVA-2022-US-2012544

PATIENT
  Age: 65 Year
  Sex: Female
  Weight: 53.52 kg

DRUGS (2)
  1. FLUTICASONE PROPIONATE\SALMETEROL XINAFOATE [Suspect]
     Active Substance: FLUTICASONE PROPIONATE\SALMETEROL XINAFOATE
     Dosage: DOSE: 113-14 MCG/DOSE-MCG/DOSE: 1 INHALATION IN THE MORNING AND 1 INHALATION AT NIGHT
     Route: 065
     Dates: start: 2021
  2. FLUTICASONE PROPIONATE\SALMETEROL XINAFOATE [Suspect]
     Active Substance: FLUTICASONE PROPIONATE\SALMETEROL XINAFOATE

REACTIONS (3)
  - Product dose omission issue [Unknown]
  - Wheezing [Unknown]
  - Product use issue [Unknown]
